FAERS Safety Report 5328594-2 (Version None)
Quarter: 2007Q2

REPORT INFORMATION
  Report Type: 
  Country: None (occurrence: None)
  Receive Date: 20070518
  Receipt Date: 20070510
  Transmission Date: 20071010
  Serious: Yes (Hospitalization)
  Sender: FDA-Public Use
  Company Number: FR-AVENTIS-200711638FR

PATIENT
  Age: 64 Year
  Sex: Female

DRUGS (3)
  1. OFLOCET                            /00731801/ [Suspect]
     Indication: PHARYNGITIS
     Route: 048
  2. KETEK [Suspect]
     Indication: PHARYNGITIS
     Route: 048
  3. ZECLAR [Suspect]
     Indication: PHARYNGITIS
     Route: 048

REACTIONS (1)
  - CUTANEOUS VASCULITIS [None]
